FAERS Safety Report 20624128 (Version 2)
Quarter: 2022Q2

REPORT INFORMATION
  Report Type: Spontaneous
  Country: US (occurrence: US)
  Receive Date: 20220322
  Receipt Date: 20220505
  Transmission Date: 20220721
  Serious: No
  Sender: FDA-Public Use
  Company Number: US-SA-SAC20220316001824

PATIENT
  Age: 44 Year
  Sex: Male

DRUGS (1)
  1. DUPIXENT [Suspect]
     Active Substance: DUPILUMAB
     Indication: Nasal polyps
     Dosage: 300 MG, QOW
     Route: 058
     Dates: start: 20211019

REACTIONS (5)
  - Dust allergy [Unknown]
  - Cough [Unknown]
  - Throat irritation [Unknown]
  - Acne [Not Recovered/Not Resolved]
  - Product use in unapproved indication [Unknown]
